FAERS Safety Report 9079358 (Version 2)
Quarter: 2013Q1

REPORT INFORMATION
  Report Type: Spontaneous
  Country: JP (occurrence: JP)
  Receive Date: 20130130
  Receipt Date: 20130213
  Transmission Date: 20140127
  Serious: Yes (Life-Threatening, Other)
  Sender: FDA-Public Use
  Company Number: JP-ROCHE-1178459

PATIENT
  Age: 62 Year
  Sex: Male
  Weight: 53 kg

DRUGS (7)
  1. TAMIFLU [Suspect]
     Indication: INFLUENZA
     Route: 048
     Dates: start: 20130102, end: 20130105
  2. CEFACLOR [Suspect]
     Indication: NASOPHARYNGITIS
     Dosage: DOSAGE IS UNCERTAIN
     Route: 048
     Dates: start: 20130102, end: 20130103
  3. CALONAL [Suspect]
     Indication: INFLUENZA
     Dosage: DOSAGE IS UNCERTAIN
     Route: 048
     Dates: start: 20130102, end: 20130103
  4. SEROQUEL [Concomitant]
     Indication: INFLUENZA
     Route: 048
     Dates: start: 20120616, end: 20130105
  5. RISPERDAL [Concomitant]
     Indication: INFLUENZA
     Route: 048
     Dates: start: 20090321, end: 20130105
  6. VEGETAMIN [Concomitant]
     Indication: INFLUENZA
     Route: 048
     Dates: start: 20090321, end: 20130105
  7. BENZALIN [Concomitant]
     Indication: INFLUENZA
     Route: 048
     Dates: start: 20090321, end: 20130105

REACTIONS (4)
  - Renal failure [Recovered/Resolved]
  - Hepatic function abnormal [Recovered/Resolved]
  - Rhabdomyolysis [Recovered/Resolved]
  - Hepatitis fulminant [Unknown]
